FAERS Safety Report 6458983-4 (Version None)
Quarter: 2009Q4

REPORT INFORMATION
  Report Type: 
  Country: None (occurrence: None)
  Receive Date: 20091125
  Receipt Date: 20091125
  Transmission Date: 20100525
  Serious: Yes (Life-Threatening)
  Sender: FDA-Public Use
  Company Number: None

PATIENT
  Age: 65 Year
  Sex: Female
  Weight: 68.0396 kg

DRUGS (2)
  1. EFFEXOR XR [Suspect]
     Indication: HOT FLUSH
     Dosage: 75 MG 1 A DAY 5 DAYS 37.5 EVERY DAY - 2 M0. 75 MG APPROX 2 MONTHS WITHDRAWAL
  2. EFFEXOR XR [Suspect]
     Indication: HOT FLUSH
     Dosage: 75 MG 1 A DAY 5 DAYS 37.5 EVERY DAY - 2 M0. 75 MG APPROX 2 MONTHS WITHDRAWAL

REACTIONS (5)
  - DIZZINESS [None]
  - DRUG DOSE OMISSION [None]
  - FALL [None]
  - LOSS OF CONSCIOUSNESS [None]
  - WITHDRAWAL SYNDROME [None]
